FAERS Safety Report 15642359 (Version 1)
Quarter: 2018Q4

REPORT INFORMATION
  Report Type: Report from Study
  Country: FR (occurrence: FR)
  Receive Date: 20181121
  Receipt Date: 20181121
  Transmission Date: 20190205
  Serious: Yes (Death, Hospitalization, Other)
  Sender: FDA-Public Use
  Company Number: FR-BRISTOL-MYERS SQUIBB COMPANY-BMS-2017-050943

PATIENT
  Age: 80 Year
  Sex: Female

DRUGS (1)
  1. NIVOLUMAB [Suspect]
     Active Substance: NIVOLUMAB
     Indication: LUNG NEOPLASM MALIGNANT
     Dosage: 140 MG, EVERY 2 WEEKS
     Route: 042
     Dates: start: 20170515, end: 20170605

REACTIONS (6)
  - Dyspnoea [Not Recovered/Not Resolved]
  - Malignant neoplasm progression [Fatal]
  - General physical health deterioration [Fatal]
  - Parkinson^s disease [Fatal]
  - Dysphagia [Not Recovered/Not Resolved]
  - Pleurisy [Not Recovered/Not Resolved]

NARRATIVE: CASE EVENT DATE: 20170525
